FAERS Safety Report 6134515-5 (Version None)
Quarter: 2009Q1

REPORT INFORMATION
  Report Type: 
  Country: None (occurrence: None)
  Receive Date: 20090327
  Receipt Date: 20090316
  Transmission Date: 20090719
  Serious: Yes (Hospitalization)
  Sender: FDA-Public Use
  Company Number: HQWYE296302FEB07

PATIENT
  Sex: Female
  Weight: 65 kg

DRUGS (4)
  1. SOMAC [Suspect]
     Indication: GASTROOESOPHAGEAL REFLUX DISEASE
     Route: 048
     Dates: start: 20060101, end: 20070101
  2. INDERAL [Concomitant]
     Indication: MIGRAINE
     Route: 048
     Dates: start: 19970101
  3. LIPITOR [Concomitant]
     Indication: METABOLIC DISORDER
     Dosage: 1 DOSAGE FORM
     Route: 048
     Dates: start: 20020101
  4. PERINDOPRIL ERBUMINE [Concomitant]
     Indication: ESSENTIAL HYPERTENSION
     Route: 048

REACTIONS (7)
  - ABDOMINAL DISTENSION [None]
  - ABDOMINAL PAIN [None]
  - DIARRHOEA [None]
  - DIZZINESS [None]
  - GASTROINTESTINAL DISORDER [None]
  - HEADACHE [None]
  - INTESTINAL FUNCTIONAL DISORDER [None]
